FAERS Safety Report 8041440-1 (Version None)
Quarter: 2012Q1

REPORT INFORMATION
  Report Type: 
  Country: None (occurrence: None)
  Receive Date: 20120112
  Receipt Date: 20120106
  Transmission Date: 20120608
  Serious: Yes (Other)
  Sender: FDA-Public Use
  Company Number: DE-PFIZER INC-2011244576

PATIENT
  Age: 78 Year
  Sex: Male
  Weight: 79 kg

DRUGS (1)
  1. TOVIAZ [Suspect]
     Indication: URGE INCONTINENCE
     Dosage: 4 MG, 1X/DAY
     Route: 048
     Dates: start: 20111006, end: 20111010

REACTIONS (6)
  - DRY MOUTH [None]
  - TACHYCARDIA [None]
  - ABDOMINAL PAIN [None]
  - DIZZINESS [None]
  - BLOOD PRESSURE INCREASED [None]
  - SPEECH DISORDER [None]
